FAERS Safety Report 8614309-9 (Version None)
Quarter: 2012Q3

REPORT INFORMATION
  Report Type: 
  Country: None (occurrence: None)
  Receive Date: 20120810
  Receipt Date: 20120807
  Transmission Date: 20120928
  Serious: Yes (Other)
  Sender: FDA-Public Use
  Company Number: USA/USA/12/0025368

PATIENT
  Age: 50 Year
  Sex: Female
  Weight: 49.8957 kg

DRUGS (3)
  1. LEVOFLOXACIN [Suspect]
     Indication: CYSTITIS
     Dosage: 500 MG, 1 IN 1 D, ORAL
     Route: 048
     Dates: start: 20120801
  2. MOTRIN [Concomitant]
  3. SYNTHROID [Concomitant]

REACTIONS (10)
  - ARTHRALGIA [None]
  - RASH ERYTHEMATOUS [None]
  - DIARRHOEA [None]
  - ORAL CANDIDIASIS [None]
  - TREMOR [None]
  - PAIN [None]
  - HYPOAESTHESIA [None]
  - MYALGIA [None]
  - HEADACHE [None]
  - VULVOVAGINAL MYCOTIC INFECTION [None]
